FAERS Safety Report 10559402 (Version 1)
Quarter: 2014Q4

REPORT INFORMATION
  Report Type: Spontaneous
  Country: PT (occurrence: PT)
  Receive Date: 20141103
  Receipt Date: 20141103
  Transmission Date: 20150529
  Serious: Yes (Other)
  Sender: FDA-Public Use
  Company Number: PT-JNJFOC-20141018937

PATIENT
  Age: 38 Year
  Sex: Male

DRUGS (1)
  1. IBUPROFEN. [Suspect]
     Active Substance: IBUPROFEN
     Indication: OROPHARYNGEAL PAIN
     Route: 065
     Dates: start: 201102

REACTIONS (4)
  - Dyspnoea [Unknown]
  - Angioedema [Unknown]
  - Dysphonia [Unknown]
  - Urticaria [Unknown]

NARRATIVE: CASE EVENT DATE: 201102
